FAERS Safety Report 16286660 (Version 1)
Quarter: 2019Q2

REPORT INFORMATION
  Report Type: Spontaneous
  Country: US (occurrence: US)
  Receive Date: 20190507
  Receipt Date: 20190507
  Transmission Date: 20190711
  Serious: Yes (Hospitalization)
  Sender: FDA-Public Use
  Company Number: None

PATIENT
  Age: 45 Year
  Sex: Female

DRUGS (5)
  1. TIZANIDINE, ZOFRAN [Concomitant]
  2. SPRYCEL [Suspect]
     Active Substance: DASATINIB
     Indication: CHRONIC MYELOID LEUKAEMIA
     Route: 048
     Dates: start: 20180907
  3. GABAPENTIN, PREDNISONE [Concomitant]
  4. ALLOPURINOL, AMITRIPTYLIN [Concomitant]
  5. ARMOUR THYRO, DILTIAZEM [Concomitant]

REACTIONS (2)
  - Intra-abdominal fluid collection [None]
  - Pleural effusion [None]

NARRATIVE: CASE EVENT DATE: 20190422
